FAERS Safety Report 7881329-1 (Version None)
Quarter: 2011Q4

REPORT INFORMATION
  Report Type: 
  Country: None (occurrence: None)
  Receive Date: 20111101
  Receipt Date: 20110525
  Transmission Date: 20120403
  Serious: No
  Sender: FDA-Public Use
  Company Number: US-AMGEN-USASP2011027545

PATIENT
  Sex: Male

DRUGS (2)
  1. ENBREL [Suspect]
     Indication: PSORIASIS
     Dosage: 50 MG, Q3WK
     Dates: start: 20070520
  2. ENBREL [Suspect]
     Dosage: 50 MG, Q3WK
     Dates: start: 20070520

REACTIONS (2)
  - PNEUMONIA [None]
  - PSORIASIS [None]
